APPROVED DRUG PRODUCT: BUSPIRONE HYDROCHLORIDE
Active Ingredient: BUSPIRONE HYDROCHLORIDE
Strength: 10MG
Dosage Form/Route: TABLET;ORAL
Application: A204582 | Product #002 | TE Code: AB
Applicant: HERITAGE PHARMA LABS INC
Approved: Sep 18, 2015 | RLD: No | RS: No | Type: RX